FAERS Safety Report 6993118-0 (Version None)
Quarter: 2010Q3

REPORT INFORMATION
  Report Type: 
  Country: None (occurrence: None)
  Receive Date: 20100917
  Receipt Date: 20100126
  Transmission Date: 20110219
  Serious: No
  Sender: FDA-Public Use
  Company Number: US-ASTRAZENECA-2010SE03554

PATIENT
  Age: 69 Year
  Sex: Female
  Weight: 63.5 kg

DRUGS (6)
  1. SEROQUEL [Suspect]
     Route: 048
     Dates: start: 20091201
  2. SYNTHROID [Concomitant]
  3. CALCIUM SUPPLEMENT [Concomitant]
  4. GLUCOPHAGE [Concomitant]
  5. AMARYL [Concomitant]
  6. INSULIN [Concomitant]

REACTIONS (4)
  - DECREASED APPETITE [None]
  - IRRITABILITY [None]
  - PARANOIA [None]
  - SLEEP DISORDER [None]
